FAERS Safety Report 8138831-7 (Version None)
Quarter: 2012Q1

REPORT INFORMATION
  Report Type: 
  Country: None (occurrence: None)
  Receive Date: 20120215
  Receipt Date: 20120208
  Transmission Date: 20120608
  Serious: Yes (Death)
  Sender: FDA-Public Use
  Company Number: US-INCYTE CORPORATION-2012IN000171

PATIENT
  Sex: Male

DRUGS (2)
  1. ALLOPURINOL [Concomitant]
  2. JAKAFI [Suspect]
     Indication: MYELOFIBROSIS
     Dosage: 20 MG, BID
     Route: 048
     Dates: start: 20120101

REACTIONS (2)
  - BLOOD CREATININE INCREASED [None]
  - DEATH [None]
